FAERS Safety Report 18183244 (Version 1)
Quarter: 2020Q3

REPORT INFORMATION
  Report Type: Spontaneous
  Country: US (occurrence: US)
  Receive Date: 20200821
  Receipt Date: 20200821
  Transmission Date: 20201103
  Serious: Yes (Other)
  Sender: FDA-Public Use
  Company Number: US-BAXTER-2020BAX016528

PATIENT
  Age: 70 Year
  Sex: Female

DRUGS (4)
  1. CYCLOPHOSPHAMIDE FOR INJECTION, USP [Suspect]
     Active Substance: CYCLOPHOSPHAMIDE
     Indication: CUTANEOUS T-CELL LYMPHOMA
     Route: 065
  2. PREDNISONE. [Suspect]
     Active Substance: PREDNISONE
     Indication: CUTANEOUS T-CELL LYMPHOMA
     Route: 065
  3. VINCRISTINE [Suspect]
     Active Substance: VINCRISTINE
     Indication: CUTANEOUS T-CELL LYMPHOMA
     Route: 065
  4. DOXIL [Suspect]
     Active Substance: DOXORUBICIN HYDROCHLORIDE
     Indication: CUTANEOUS T-CELL LYMPHOMA
     Route: 065

REACTIONS (3)
  - Urosepsis [Unknown]
  - Skin lesion [Unknown]
  - Superinfection [Unknown]
